FAERS Safety Report 6438312-2 (Version None)
Quarter: 2009Q4

REPORT INFORMATION
  Report Type: 
  Country: None (occurrence: None)
  Receive Date: 20091112
  Receipt Date: 20091111
  Transmission Date: 20100525
  Serious: Yes (Death)
  Sender: FDA-Public Use
  Company Number: PHHY2009CN36784

PATIENT

DRUGS (1)
  1. TRILEPTAL [Suspect]
     Indication: EPILEPSY
     Dosage: TWICE DAILY (ONE PILL IN THE MORNING AND ONE PILL IN THE EVENING)

REACTIONS (1)
  - MYOCARDIAL INFARCTION [None]
